FAERS Safety Report 13187257 (Version 4)
Quarter: 2017Q3

REPORT INFORMATION
  Report Type: Spontaneous
  Country: NO (occurrence: NO)
  Receive Date: 20170206
  Receipt Date: 20170928
  Transmission Date: 20171127
  Serious: Yes (Hospitalization)
  Sender: FDA-Public Use
  Company Number: NO-009507513-1701NOR013487

PATIENT
  Age: 72 Year
  Sex: Female

DRUGS (8)
  1. ZYPREXA [Interacting]
     Active Substance: OLANZAPINE
     Indication: INSOMNIA
     Dosage: UNK
  2. QUETIAPINE FUMARATE. [Concomitant]
     Active Substance: QUETIAPINE FUMARATE
     Indication: INSOMNIA
     Dosage: 25 MG, QD
     Route: 048
     Dates: start: 20161031
  3. METHOTREXATE. [Concomitant]
     Active Substance: METHOTREXATE
     Indication: RHEUMATOID ARTHRITIS
     Dosage: TWO DOSES WERE WITHDRAWN DUE TO THE SINUSITIS
     Route: 048
  4. FOLSYRE [Concomitant]
     Indication: VITAMIN SUPPLEMENTATION
     Dosage: 1 MG, BIW
     Route: 048
  5. ZYPREXA [Interacting]
     Active Substance: OLANZAPINE
     Indication: DEPRESSION
     Dosage: 5 MG QD
     Route: 048
     Dates: start: 20161021, end: 20161026
  6. REMERON [Suspect]
     Active Substance: MIRTAZAPINE
     Indication: DEPRESSION
     Dosage: 45 MG QD
     Route: 048
     Dates: start: 20161009
  7. ABBOTICIN (ERYTHROMYCIN STEARATE) [Interacting]
     Active Substance: ERYTHROMYCIN STEARATE
     Indication: ACUTE SINUSITIS
     Dosage: 1 G, BID
     Route: 048
     Dates: start: 20161017, end: 20161027
  8. STILNOCT [Concomitant]
     Active Substance: ZOLPIDEM TARTRATE
     Indication: INSOMNIA
     Dosage: 10 MG QD
     Route: 048
     Dates: start: 20161021, end: 20161031

REACTIONS (2)
  - Hepatic enzyme increased [Recovering/Resolving]
  - Blood bilirubin increased [Recovering/Resolving]

NARRATIVE: CASE EVENT DATE: 20161028
